FAERS Safety Report 17780104 (Version 2)
Quarter: 2020Q2

REPORT INFORMATION
  Report Type: Spontaneous
  Country: FR (occurrence: FR)
  Receive Date: 20200514
  Receipt Date: 20200528
  Transmission Date: 20200714
  Serious: Yes (Life-Threatening, Hospitalization)
  Sender: FDA-Public Use
  Company Number: FR-AUROBINDO-AUR-APL-2020-024362

PATIENT
  Age: 54 Year
  Sex: Male

DRUGS (2)
  1. RISPERIDONE ARROW LAB 4 MG FILM-COATED TABLETS SCORED [Suspect]
     Active Substance: RISPERIDONE
     Indication: AUTISM SPECTRUM DISORDER
     Dosage: UNK
     Route: 048
  2. NEULEPTIL [Suspect]
     Active Substance: PERICIAZINE
     Indication: AUTISM SPECTRUM DISORDER
     Dosage: UNK
     Route: 048

REACTIONS (3)
  - Bruxism [Recovered/Resolved]
  - Priapism [Recovered/Resolved]
  - Hyperthermia [Recovered/Resolved]

NARRATIVE: CASE EVENT DATE: 20200415
